FAERS Safety Report 19505916 (Version 1)
Quarter: 2021Q3

REPORT INFORMATION
  Report Type: Report from Study
  Country: US (occurrence: US)
  Receive Date: 20210708
  Receipt Date: 20210708
  Transmission Date: 20211014
  Serious: No
  Sender: FDA-Public Use
  Company Number: NVSC2021US144288

PATIENT
  Sex: Female

DRUGS (1)
  1. ENTRESTO [Suspect]
     Active Substance: SACUBITRIL\VALSARTAN
     Indication: CARDIAC FAILURE
     Dosage: 49.51 MG, BID
     Route: 065
     Dates: start: 202103

REACTIONS (4)
  - Chest pain [Unknown]
  - Dyspnoea [Unknown]
  - Product dose omission issue [Unknown]
  - Tachycardia [Unknown]
